FAERS Safety Report 5757421-4 (Version None)
Quarter: 2008Q2

REPORT INFORMATION
  Report Type: 
  Country: None (occurrence: None)
  Receive Date: 20080603
  Receipt Date: 20080528
  Transmission Date: 20081010
  Serious: Yes (Hospitalization)
  Sender: FDA-Public Use
  Company Number: US-GENENTECH-261595

PATIENT
  Sex: Male

DRUGS (5)
  1. XOLAIR [Suspect]
     Indication: ASTHMA
     Dosage: UNK, UNK
  2. PREDNISONE TAB [Concomitant]
     Indication: ASTHMA
  3. BLOOD PRESSURE MEDICATIONS NOS [Concomitant]
     Indication: BLOOD PRESSURE
  4. WATER PILL (UNK INGREDIENTS) [Concomitant]
     Indication: DRUG USE FOR UNKNOWN INDICATION
  5. INHALER (UNK INGREDIENTS) [Concomitant]
     Indication: ASTHMA

REACTIONS (3)
  - BLOOD PRESSURE DECREASED [None]
  - PRURITUS [None]
  - SUPRAVENTRICULAR TACHYCARDIA [None]
